FAERS Safety Report 16316083 (Version 1)
Quarter: 2019Q2

REPORT INFORMATION
  Report Type: Spontaneous
  Country: US (occurrence: US)
  Receive Date: 20190515
  Receipt Date: 20190515
  Transmission Date: 20190711
  Serious: Yes (Death, Hospitalization)
  Sender: FDA-Public Use
  Company Number: US-NOVOPROD-661755

PATIENT
  Age: 83 Year
  Sex: Male

DRUGS (1)
  1. LEVEMIR [Suspect]
     Active Substance: INSULIN DETEMIR
     Indication: PRODUCT USED FOR UNKNOWN INDICATION
     Dosage: 45 IU, QD
     Route: 065

REACTIONS (3)
  - Cardiac arrest [Fatal]
  - Shock hypoglycaemic [Fatal]
  - Hypoglycaemic unconsciousness [Fatal]
